FAERS Safety Report 7204557-7 (Version None)
Quarter: 2010Q4

REPORT INFORMATION
  Report Type: 
  Country: None (occurrence: None)
  Receive Date: 20101230
  Receipt Date: 20101220
  Transmission Date: 20110411
  Serious: Yes (Other)
  Sender: FDA-Public Use
  Company Number: PHHY2010IT84451

PATIENT

DRUGS (4)
  1. EVEROLIMUS [Suspect]
     Dosage: UNK
  2. STEROIDS NOS [Concomitant]
     Dosage: UNK
  3. TACROLIMUS [Concomitant]
     Dosage: UNK
  4. EPOGEN [Concomitant]
     Dosage: UNK

REACTIONS (2)
  - ANAEMIA [None]
  - BONE MARROW FAILURE [None]
